FAERS Safety Report 11227733 (Version 1)
Quarter: 2015Q2

REPORT INFORMATION
  Report Type: Report from Study
  Country: US (occurrence: None)
  Receive Date: 20150626
  Receipt Date: 20150626
  Transmission Date: 20150821
  Serious: Yes (Other)
  Sender: FDA-Public Use
  Company Number: KAD201506-001615

PATIENT
  Age: 34 Year
  Sex: Male
  Weight: 82.1 kg

DRUGS (2)
  1. RIBAVIRIN 600 MG TABLETS (RIBAVIRIN) [Suspect]
     Active Substance: RIBAVIRIN
     Indication: HEPATITIS C
     Route: 048
     Dates: start: 201505, end: 201506
  2. VIEKIRA PAK [Suspect]
     Active Substance: DASABUVIR\OMBITASVIR\PARITAPREVIR\RITONAVIR
     Indication: HEPATITIS C
     Dosage: 3 TABLETS IN AM AND 1 TABLET IN PM, 1 IN 12 HOURS
     Route: 048
     Dates: start: 20150511

REACTIONS (16)
  - Wound haemorrhage [None]
  - Nervousness [None]
  - Emergency care [None]
  - Irritability [None]
  - Skin lesion [None]
  - Aggression [None]
  - Tremor [None]
  - Blister [None]
  - Paraesthesia [None]
  - Rash [None]
  - Panic attack [None]
  - Dyspnoea [None]
  - Anger [None]
  - Insomnia [None]
  - Mania [None]
  - Skin exfoliation [None]
